FAERS Safety Report 22046119 (Version 4)
Quarter: 2023Q1

REPORT INFORMATION
  Report Type: Spontaneous
  Country: US (occurrence: US)
  Receive Date: 20230228
  Receipt Date: 20230228
  Transmission Date: 20230418
  Serious: No
  Sender: FDA-Public Use
  Company Number: US-ALLERGAN-2206766US

PATIENT
  Age: 62 Year
  Sex: Female
  Weight: 82.5 kg

DRUGS (11)
  1. ESTRADIOL [Suspect]
     Active Substance: ESTRADIOL
     Indication: Atrophic vulvovaginitis
     Dosage: 2 G, BI-WEEKLY
  2. ESTRADIOL [Suspect]
     Active Substance: ESTRADIOL
     Indication: Atrophic vulvovaginitis
     Dosage: 2 G, BI-WEEKLY
  3. ESTRADIOL [Suspect]
     Active Substance: ESTRADIOL
  4. ESTRADIOL [Suspect]
     Active Substance: ESTRADIOL
     Indication: Atrophic vulvovaginitis
     Dosage: 2 G, BI-WEEKLY
  5. ESTRADIOL [Suspect]
     Active Substance: ESTRADIOL
  6. ESTRADIOL [Suspect]
     Active Substance: ESTRADIOL
  7. ESTRADIOL [Suspect]
     Active Substance: ESTRADIOL
     Indication: Atrophic vulvovaginitis
     Dosage: 2 G, BI-WEEKLY
  8. ESTRADIOL [Suspect]
     Active Substance: ESTRADIOL
  9. ESTRADIOL [Suspect]
     Active Substance: ESTRADIOL
  10. ESTRADIOL [Suspect]
     Active Substance: ESTRADIOL
  11. ESTRADIOL [Concomitant]
     Active Substance: ESTRADIOL
     Indication: Hot flush
     Dosage: 1 DF, QPM
     Route: 048

REACTIONS (3)
  - Therapy interrupted [Unknown]
  - Pruritus [Unknown]
  - Product packaging quantity issue [Unknown]
